FAERS Safety Report 6986101-2 (Version None)
Quarter: 2010Q3

REPORT INFORMATION
  Report Type: 
  Country: None (occurrence: None)
  Receive Date: 20100915
  Receipt Date: 20100907
  Transmission Date: 20110219
  Serious: Yes (Hospitalization)
  Sender: FDA-Public Use
  Company Number: US-GENENTECH-306309

PATIENT
  Age: 85 Year
  Sex: Female

DRUGS (1)
  1. RITUXAN [Suspect]
     Indication: CHRONIC LEUKAEMIA

REACTIONS (2)
  - ACARODERMATITIS [None]
  - ALOPECIA [None]
